FAERS Safety Report 8852979 (Version 1)
Quarter: 2012Q4

REPORT INFORMATION
  Report Type: 
  Country: JP (occurrence: JP)
  Receive Date: 20121022
  Receipt Date: 20121022
  Transmission Date: 20130627
  Serious: Yes (Other)
  Sender: FDA-Public Use
  Company Number: CHPA2012JP022091

PATIENT
  Sex: Male

DRUGS (2)
  1. NICOTINELL [Suspect]
     Indication: SMOKING CESSATION THERAPY
     Dosage: 52.5 mg, QD
     Route: 062
     Dates: start: 20121017
  2. ANTIHYPERTENSIVES [Concomitant]
     Indication: HYPERTENSION
     Dosage: Unk, Unk

REACTIONS (2)
  - Hypertension [Unknown]
  - Chest discomfort [Unknown]
